FAERS Safety Report 23510154 (Version 1)
Quarter: 2024Q1

REPORT INFORMATION
  Report Type: Spontaneous
  Country: US (occurrence: None)
  Receive Date: 20240211
  Receipt Date: 20240211
  Transmission Date: 20240410
  Serious: No
  Sender: FDA-Public Use
  Company Number: 2024A028411

PATIENT
  Sex: Female

DRUGS (2)
  1. NEXIUM [Suspect]
     Active Substance: ESOMEPRAZOLE MAGNESIUM
     Route: 048
  2. ESOMEPRAZOLE MAGNESIUM [Suspect]
     Active Substance: ESOMEPRAZOLE\ESOMEPRAZOLE MAGNESIUM\ESOMEPRAZOLE MAGNESIUM DIHYDRATE
     Route: 048

REACTIONS (8)
  - Pain [Unknown]
  - Dry mouth [Unknown]
  - Hypoaesthesia oral [Unknown]
  - Insomnia [Unknown]
  - Cough [Unknown]
  - Pain in extremity [Unknown]
  - Visual impairment [Unknown]
  - Drug ineffective [Unknown]
